FAERS Safety Report 19394345 (Version 1)
Quarter: 2021Q2

REPORT INFORMATION
  Report Type: Report from Study
  Country: FR (occurrence: FR)
  Receive Date: 20210609
  Receipt Date: 20210609
  Transmission Date: 20210717
  Serious: Yes (Other)
  Sender: FDA-Public Use
  Company Number: FR-GW PHARMA-202007FRGW02433

PATIENT

DRUGS (3)
  1. DEPAKINE [VALPROATE SODIUM] [Concomitant]
     Active Substance: VALPROATE SODIUM
     Indication: PRODUCT USED FOR UNKNOWN INDICATION
     Dosage: 700 MILLIGRAM, BID (3.5 ML BID)
     Route: 048
  2. EPIDIOLEX [Suspect]
     Active Substance: CANNABIDIOL
     Indication: EPILEPTIC ENCEPHALOPATHY
     Dosage: 300 MILLIGRAM, BID
     Route: 048
  3. URBANYL [Concomitant]
     Active Substance: CLOBAZAM
     Indication: PRODUCT USED FOR UNKNOWN INDICATION
     Dosage: 15 MILLIGRAM, QD (5 MG MORNING AND 10 MG EVENING)
     Route: 065

REACTIONS (1)
  - Thrombocytopenia [Not Recovered/Not Resolved]

NARRATIVE: CASE EVENT DATE: 20200605
